FAERS Safety Report 7036961-4 (Version None)
Quarter: 2010Q4

REPORT INFORMATION
  Report Type: 
  Country: None (occurrence: None)
  Receive Date: 20101011
  Receipt Date: 20100930
  Transmission Date: 20110411
  Serious: Yes (Other)
  Sender: FDA-Public Use
  Company Number: CA-JNJCH-2010018951

PATIENT
  Age: 31 Year
  Sex: Male
  Weight: 83 kg

DRUGS (1)
  1. LISTERINE WHITENING PRE-BRUSH RINSE [Suspect]
     Indication: DENTAL CARE
     Dosage: TEXT:^LITTLE BIT^ ONCE ONLY
     Route: 050

REACTIONS (8)
  - INFECTION [None]
  - LOCAL SWELLING [None]
  - MALAISE [None]
  - NECK PAIN [None]
  - NODULE [None]
  - PARAESTHESIA ORAL [None]
  - STRESS [None]
  - TONGUE DISORDER [None]
